FAERS Safety Report 6285267-X (Version None)
Quarter: 2009Q3

REPORT INFORMATION
  Report Type: 
  Country: None (occurrence: None)
  Receive Date: 20090727
  Receipt Date: 20090721
  Transmission Date: 20100115
  Serious: Yes (Hospitalization)
  Sender: FDA-Public Use
  Company Number: DE-TEVA-203120ISR

PATIENT
  Age: 74 Year
  Sex: Male
  Weight: 73 kg

DRUGS (3)
  1. BISOPROLOL [Suspect]
     Indication: HYPERTENSION
     Route: 048
     Dates: start: 20040101
  2. REPAGLINIDE [Interacting]
     Indication: TYPE 2 DIABETES MELLITUS
     Route: 048
     Dates: start: 20080818, end: 20080831
  3. ENALAPRIL MALEATE [Interacting]
     Indication: HYPERTENSION
     Route: 048
     Dates: start: 20040101

REACTIONS (1)
  - HYPOGLYCAEMIA [None]
